FAERS Safety Report 16884004 (Version 1)
Quarter: 2019Q4

REPORT INFORMATION
  Report Type: Spontaneous
  Country: US (occurrence: US)
  Receive Date: 20191004
  Receipt Date: 20191004
  Transmission Date: 20200122
  Serious: Yes (Hospitalization, Other)
  Sender: FDA-Public Use
  Company Number: US-PACIRA-201900312

PATIENT

DRUGS (5)
  1. BUPIVACAINE HCL [Suspect]
     Active Substance: BUPIVACAINE HYDROCHLORIDE
     Indication: PERIOPERATIVE ANALGESIA
     Dosage: 30 ML
  2. SALINE [Suspect]
     Active Substance: SODIUM CHLORIDE
     Indication: PERIOPERATIVE ANALGESIA
     Dosage: 30 ML
  3. EPINEPHRIN (EPINEPHRINE) [Suspect]
     Active Substance: EPINEPHRINE
     Indication: PERIOPERATIVE ANALGESIA
  4. EXPAREL [Suspect]
     Active Substance: BUPIVACAINE
     Indication: PERIOPERATIVE ANALGESIA
     Dosage: 266MG/20 ML
     Route: 052
  5. KETOROLAC [Suspect]
     Active Substance: KETOROLAC TROMETHAMINE
     Indication: PERIOPERATIVE ANALGESIA
     Dosage: 15 MG

REACTIONS (8)
  - Pneumonia [Unknown]
  - Urinary retention [Unknown]
  - Pulmonary embolism [Unknown]
  - Gastrointestinal ulcer [Unknown]
  - Fracture treatment [Unknown]
  - Deep vein thrombosis [Unknown]
  - Myocardial infarction [Unknown]
  - Syncope [Unknown]
